FAERS Safety Report 9258545 (Version 1)
Quarter: 2013Q1

REPORT INFORMATION
  Report Type: Spontaneous
  Country: US (occurrence: None)
  Receive Date: 20121212
  Receipt Date: 20121212
  Transmission Date: 20140127
  Serious: No
  Sender: FDA-Public Use
  Company Number: 1210USA012143

PATIENT
  Sex: Female

DRUGS (3)
  1. PEGASYS [Suspect]
     Indication: HEPATITIS C
     Dates: start: 20120917
  2. RIBAVIRIN [Suspect]
     Indication: HEPATITIS C
     Dates: start: 20120917
  3. VICTRELIS [Suspect]
     Indication: HEPATITIS C
     Dates: start: 20121024

REACTIONS (5)
  - Nervousness [None]
  - Cardiac discomfort [None]
  - Chest pain [None]
  - Anxiety [None]
  - Decreased appetite [None]
